FAERS Safety Report 10371298 (Version 3)
Quarter: 2015Q1

REPORT INFORMATION
  Report Type: Spontaneous
  Country: JP (occurrence: JP)
  Receive Date: 20140808
  Receipt Date: 20150311
  Transmission Date: 20150720
  Serious: Yes (Hospitalization, Other)
  Sender: FDA-Public Use
  Company Number: JP-SA-2014SA104944

PATIENT
  Age: 70 Year
  Sex: Male

DRUGS (6)
  1. DOXORUBICIN [Suspect]
     Active Substance: DOXORUBICIN
     Indication: PLEOMORPHIC MALIGNANT FIBROUS HISTIOCYTOMA
     Dosage: ON DAY 1 OF A 21-DAY CYCLE
     Route: 065
     Dates: start: 201204
  2. ETOPOSIDE. [Suspect]
     Active Substance: ETOPOSIDE
     Indication: PLEOMORPHIC MALIGNANT FIBROUS HISTIOCYTOMA
     Dosage: DAY 1-4 0F A 21- DAY CYCLE
     Route: 065
     Dates: start: 201208
  3. IFOSFAMIDE. [Suspect]
     Active Substance: IFOSFAMIDE
     Indication: PLEOMORPHIC MALIGNANT FIBROUS HISTIOCYTOMA
     Dosage: DAY 1-4 OF A 21-DAY CYCLE DOSE:2 GRAM(S)/SQUARE METER
     Route: 065
     Dates: start: 201208
  4. TAXOTERE [Suspect]
     Active Substance: DOCETAXEL
     Indication: PLEOMORPHIC MALIGNANT FIBROUS HISTIOCYTOMA
     Dosage: ON DAY 1OF A 21-DAY CYCLE
     Route: 042
     Dates: start: 201211, end: 201401
  5. IFOSFAMIDE. [Suspect]
     Active Substance: IFOSFAMIDE
     Indication: PLEOMORPHIC MALIGNANT FIBROUS HISTIOCYTOMA
     Dosage: ON DAY 1-3 OF 21-DAY CYCLE DOSE:2 GRAM(S)/SQUARE METER
     Route: 065
     Dates: start: 201204
  6. GEMCITABINE [Suspect]
     Active Substance: GEMCITABINE\GEMCITABINE HYDROCHLORIDE
     Indication: PLEOMORPHIC MALIGNANT FIBROUS HISTIOCYTOMA
     Dosage: ON DAY 1 AND 8 OF A 21-DAY CYCLE.
     Route: 065
     Dates: start: 201211, end: 201401

REACTIONS (12)
  - Pulmonary cavitation [Unknown]
  - Nausea [Unknown]
  - Neutrophil count decreased [Unknown]
  - Pneumothorax [Unknown]
  - Dyspnoea [Recovering/Resolving]
  - Pleurocutaneous fistula [Unknown]
  - Neutrophil count decreased [Unknown]
  - Pleurocutaneous fistula [Not Recovered/Not Resolved]
  - Pneumothorax [Recovering/Resolving]
  - Pulmonary air leakage [Not Recovered/Not Resolved]
  - Pneumothorax [Recovering/Resolving]
  - Pleural disorder [Unknown]

NARRATIVE: CASE EVENT DATE: 2012
